FAERS Safety Report 7205111-3 (Version None)
Quarter: 2010Q4

REPORT INFORMATION
  Report Type: 
  Country: None (occurrence: None)
  Receive Date: 20101230
  Receipt Date: 20101217
  Transmission Date: 20110411
  Serious: Yes (Other)
  Sender: FDA-Public Use
  Company Number: US-CELGENEUS-163-21880-10112875

PATIENT
  Sex: Male

DRUGS (6)
  1. REVLIMID [Suspect]
     Route: 048
     Dates: start: 20080714
  2. ASPIRIN [Concomitant]
     Route: 065
  3. CA+ [Concomitant]
     Route: 065
  4. DECADRON [Concomitant]
     Route: 065
  5. PRILOSEC [Concomitant]
     Route: 065
  6. ZOLOFT [Concomitant]
     Route: 065

REACTIONS (1)
  - CATARACT [None]
